FAERS Safety Report 14495302 (Version 1)
Quarter: 2018Q1

REPORT INFORMATION
  Report Type: Spontaneous
  Country: US (occurrence: US)
  Receive Date: 20180206
  Receipt Date: 20180206
  Transmission Date: 20180509
  Serious: No
  Sender: FDA-Public Use
  Company Number: US-SMITH AND NEPHEW, INC-2017SMT00031

PATIENT
  Age: 48 Year
  Sex: Male

DRUGS (9)
  1. FETZIMA [Concomitant]
     Active Substance: LEVOMILNACIPRAN HYDROCHLORIDE
  2. REGRANEX [Suspect]
     Active Substance: BECAPLERMIN
     Dosage: UNK UNK, 1X/DAY
     Route: 061
     Dates: start: 201612
  3. SYMBICORT [Concomitant]
     Active Substance: BUDESONIDE\FORMOTEROL FUMARATE DIHYDRATE
  4. PROAIR INAHLER [Concomitant]
  5. LANTUS [Concomitant]
     Active Substance: INSULIN GLARGINE
  6. UNSPECIFIED COMPOUNDED PRESCRIPTION [Concomitant]
     Route: 061
  7. HUMALOG [Concomitant]
     Active Substance: INSULIN LISPRO
  8. REGRANEX [Suspect]
     Active Substance: BECAPLERMIN
     Indication: DIABETIC FOOT
     Dosage: UNK, EVERY 48 HOURS
     Route: 061
  9. NEURONTIN [Concomitant]
     Active Substance: GABAPENTIN

REACTIONS (8)
  - Inappropriate schedule of drug administration [Not Recovered/Not Resolved]
  - C-reactive protein increased [Unknown]
  - Red blood cell analysis abnormal [Unknown]
  - Application site pain [Unknown]
  - Haemoglobin abnormal [Unknown]
  - Mean cell volume abnormal [Unknown]
  - Eosinophil count abnormal [Unknown]
  - Mean cell haemoglobin concentration abnormal [Unknown]

NARRATIVE: CASE EVENT DATE: 20170109
